FAERS Safety Report 7153288-0 (Version None)
Quarter: 2010Q4

REPORT INFORMATION
  Report Type: 
  Country: None (occurrence: None)
  Receive Date: 20101213
  Receipt Date: 20101209
  Transmission Date: 20110411
  Serious: Yes (Hospitalization)
  Sender: FDA-Public Use
  Company Number: PHHO2010JP11802

PATIENT
  Sex: Female
  Weight: 15 kg

DRUGS (3)
  1. ACZ885 ACZ+ [Suspect]
     Indication: CRYOPYRIN ASSOCIATED PERIODIC SYNDROME
     Dosage: UNK
     Route: 058
     Dates: start: 20091215
  2. ACZ885 ACZ+ [Suspect]
     Indication: MUCKLE-WELLS SYNDROME
  3. PREDNISOLONE [Suspect]

REACTIONS (12)
  - EAR PAIN [None]
  - HEADACHE [None]
  - INFLAMMATION [None]
  - LYMPHADENOPATHY [None]
  - MALAISE [None]
  - MENINGITIS MUMPS [None]
  - NUCHAL RIGIDITY [None]
  - PAIN [None]
  - PAROTID GLAND ENLARGEMENT [None]
  - PYREXIA [None]
  - SUBMAXILLARY GLAND ENLARGEMENT [None]
  - VOMITING [None]
